FAERS Safety Report 11564587 (Version 1)
Quarter: 2015Q3

REPORT INFORMATION
  Report Type: Report from Study
  Country: NO (occurrence: NO)
  Receive Date: 20150928
  Receipt Date: 20150928
  Transmission Date: 20151125
  Serious: Yes (Other)
  Sender: FDA-Public Use
  Company Number: US-ASTRAZENECA-2015SE87326

PATIENT
  Age: 56 Year
  Sex: Female
  Weight: 102 kg

DRUGS (3)
  1. ROFLUMILAST [Suspect]
     Active Substance: ROFLUMILAST
     Indication: CHRONIC OBSTRUCTIVE PULMONARY DISEASE
     Route: 048
     Dates: start: 20140128, end: 20140214
  2. CORTICOSTEROID NOS [Concomitant]
     Active Substance: CORTICOSTEROID NOS
  3. SPIRIVA [Concomitant]
     Active Substance: TIOTROPIUM BROMIDE MONOHYDRATE
     Dosage: 5 ?G, QD

REACTIONS (5)
  - Gastrointestinal pain [Recovered/Resolved]
  - Abdominal pain upper [Recovered/Resolved]
  - Adverse event [Unknown]
  - Flatulence [Recovered/Resolved]
  - Diarrhoea [Recovered/Resolved]

NARRATIVE: CASE EVENT DATE: 201401
